APPROVED DRUG PRODUCT: OMEGAVEN
Active Ingredient: FISH OIL TRIGLYCERIDES
Strength: 10GM/100ML (0.1GM/ML)
Dosage Form/Route: EMULSION;INTRAVENOUS
Application: N210589 | Product #002
Applicant: FRESENIUS KABI USA LLC
Approved: Jul 27, 2018 | RLD: Yes | RS: Yes | Type: RX

PATENTS:
Patent 9566260 | Expires: Jul 30, 2026